FAERS Safety Report 10388218 (Version 1)
Quarter: 2014Q3

REPORT INFORMATION
  Report Type: Spontaneous
  Country: PL (occurrence: PL)
  Receive Date: 20140815
  Receipt Date: 20140815
  Transmission Date: 20150326
  Serious: Yes (Other)
  Sender: FDA-Public Use
  Company Number: PL-GLAXOSMITHKLINE-B1023318A

PATIENT
  Age: 35 Year
  Sex: Male

DRUGS (1)
  1. TROBALT [Suspect]
     Active Substance: EZOGABINE
     Indication: EPILEPSY
     Route: 048
     Dates: start: 20120831, end: 20140422

REACTIONS (4)
  - Visual acuity reduced [Recovering/Resolving]
  - Chromaturia [Recovering/Resolving]
  - Slow response to stimuli [Recovering/Resolving]
  - Micturition disorder [Recovering/Resolving]

NARRATIVE: CASE EVENT DATE: 201307
